FAERS Safety Report 20617899 (Version 2)
Quarter: 2022Q2

REPORT INFORMATION
  Report Type: Report from Study
  Country: US (occurrence: US)
  Receive Date: 20220321
  Receipt Date: 20220517
  Transmission Date: 20220721
  Serious: Yes (Hospitalization)
  Sender: FDA-Public Use
  Company Number: US-BAYER-2022A031662

PATIENT
  Age: 70 Year
  Sex: Female
  Weight: 123.81 kg

DRUGS (2)
  1. ADEMPAS [Suspect]
     Active Substance: RIOCIGUAT
     Indication: Pulmonary arterial hypertension
     Dosage: UNK
     Dates: start: 20180831
  2. ADEMPAS [Suspect]
     Active Substance: RIOCIGUAT
     Indication: Pulmonary arterial hypertension
     Dosage: 2.5 MG, TID
     Route: 048

REACTIONS (7)
  - Pulmonary oedema [None]
  - Oedema peripheral [None]
  - Dyspnoea [None]
  - Limb discomfort [None]
  - Productive cough [None]
  - Sputum discoloured [None]
  - Migraine [None]

NARRATIVE: CASE EVENT DATE: 20220301
